FAERS Safety Report 4931812-3 (Version None)
Quarter: 2006Q1

REPORT INFORMATION
  Report Type: 
  Country: None (occurrence: None)
  Receive Date: 20060303
  Receipt Date: 20060223
  Transmission Date: 20060701
  Serious: Yes (Hospitalization, Other)
  Sender: FDA-Public Use
  Company Number: CA-AVENTIS-200611720GDDC

PATIENT
  Sex: Female

DRUGS (4)
  1. KETEK [Suspect]
     Indication: SINUSITIS
     Dosage: DOSE: UNK
     Dates: start: 20060123, end: 20060124
  2. GABAPENTIN [Concomitant]
     Route: 048
  3. LOSEC [Concomitant]
     Dosage: DOSE: UNK
  4. NUVARING [Concomitant]

REACTIONS (9)
  - ABDOMINAL PAIN [None]
  - CEREBROVASCULAR ACCIDENT [None]
  - DYSSTASIA [None]
  - EYELID PTOSIS [None]
  - HEMIPLEGIA [None]
  - HYPOAESTHESIA [None]
  - MIGRAINE [None]
  - PALPITATIONS [None]
  - PARALYSIS [None]
